FAERS Safety Report 12730928 (Version 1)
Quarter: 2016Q3

REPORT INFORMATION
  Report Type: Spontaneous
  Country: US (occurrence: US)
  Receive Date: 20160909
  Receipt Date: 20160909
  Transmission Date: 20161109
  Serious: Yes (Disabling, Other)
  Sender: FDA-Public Use
  Company Number: None

PATIENT
  Age: 73 Year
  Sex: Male
  Weight: 59.88 kg

DRUGS (6)
  1. CRESTOR [Concomitant]
     Active Substance: ROSUVASTATIN CALCIUM
  2. VITAMIN D [Concomitant]
     Active Substance: CHOLECALCIFEROL
  3. ASACOL HD [Concomitant]
     Active Substance: MESALAMINE
  4. REMICADE [Suspect]
     Active Substance: INFLIXIMAB
     Indication: CROHN^S DISEASE
     Dosage: EVERY 8 WEEKS BY INFUSION IN IV
     Route: 042
     Dates: start: 201404, end: 20151209
  5. LEVOTHYROXINE. [Concomitant]
     Active Substance: LEVOTHYROXINE
  6. SAW PALMETTO BERRIES [Concomitant]

REACTIONS (10)
  - Pain [None]
  - Feeling abnormal [None]
  - Discomfort [None]
  - Prostatic disorder [None]
  - Change of bowel habit [None]
  - Constipation [None]
  - Bladder disorder [None]
  - Testicular disorder [None]
  - Muscle disorder [None]
  - Weight decreased [None]

NARRATIVE: CASE EVENT DATE: 201512
